FAERS Safety Report 14707222 (Version 1)
Quarter: 2018Q2

REPORT INFORMATION
  Report Type: Spontaneous
  Country: DE (occurrence: DE)
  Receive Date: 20180403
  Receipt Date: 20180403
  Transmission Date: 20180711
  Serious: Yes (Death)
  Sender: FDA-Public Use
  Company Number: DE-AUROBINDO-AUR-APL-2018-013513

PATIENT
  Age: 78 Year
  Sex: Male

DRUGS (33)
  1. QUETIAPINE FUMARATE. [Suspect]
     Active Substance: QUETIAPINE FUMARATE
     Dosage: 100 MG, QD
     Route: 048
     Dates: start: 2017
  2. QUETIAPINE FUMARATE. [Suspect]
     Active Substance: QUETIAPINE FUMARATE
     Dosage: UNK ()
     Route: 048
     Dates: start: 2016
  3. DRONABINOL. [Suspect]
     Active Substance: DRONABINOL
     Dosage: 2.5 MG, QD
     Route: 065
     Dates: start: 2016
  4. PAROXETINE. [Suspect]
     Active Substance: PAROXETINE
     Indication: AGGRESSION
     Dosage: 10 MG, QD
     Route: 065
     Dates: start: 2017
  5. QUETIAPINE FUMARATE. [Suspect]
     Active Substance: QUETIAPINE FUMARATE
     Indication: DEMENTIA WITH LEWY BODIES
     Dosage: 150 MG, QD
     Route: 048
     Dates: start: 2016
  6. LORAZEPAM. [Suspect]
     Active Substance: LORAZEPAM
     Indication: DELIRIUM
     Dosage: UNK UNK, QD (1)
     Route: 065
     Dates: start: 2016
  7. DONEPEZIL. [Concomitant]
     Active Substance: DONEPEZIL
     Indication: AGGRESSION
     Dosage: ()
  8. CARBAMAZEPINE. [Concomitant]
     Active Substance: CARBAMAZEPINE
     Indication: PRODUCT USED FOR UNKNOWN INDICATION
     Dosage: ()
     Route: 065
  9. PAROXETINE. [Suspect]
     Active Substance: PAROXETINE
     Dosage: ()
  10. FLUPENTIXOL DIHYDROCHLORIDE [Suspect]
     Active Substance: FLUPENTIXOL DIHYDROCHLORIDE
     Dosage: 20 MG, QD
     Route: 048
  11. DEXTROMETHORPHAN HYDROBROMIDE. [Suspect]
     Active Substance: DEXTROMETHORPHAN HYDROBROMIDE
     Indication: DELIRIUM
     Dosage: 24 MG, QD
     Route: 065
     Dates: start: 2017
  12. DRONABINOL. [Suspect]
     Active Substance: DRONABINOL
     Indication: AGGRESSION
     Dosage: 15 MG, QD
     Route: 065
     Dates: start: 2016
  13. DRONABINOL. [Suspect]
     Active Substance: DRONABINOL
     Dosage: 2.5 MG, QD
     Route: 065
     Dates: start: 2016
  14. PAROXETINE. [Suspect]
     Active Substance: PAROXETINE
     Indication: AGITATION
     Dosage: ()
  15. FLUPENTIXOL DIHYDROCHLORIDE [Suspect]
     Active Substance: FLUPENTIXOL DIHYDROCHLORIDE
     Dosage: AS HIGH AS TOLERATED; UNK ()
     Route: 048
  16. FORMOTEROL [Suspect]
     Active Substance: FORMOTEROL
     Indication: PNEUMONIA
     Dosage: 20 MG, QD
     Route: 065
     Dates: start: 201601
  17. QUETIAPINE FUMARATE. [Suspect]
     Active Substance: QUETIAPINE FUMARATE
     Indication: DELIRIUM
     Dosage: UNK ()
     Route: 048
     Dates: start: 2016
  18. AMPICILLIN AND SULBACTAM [Suspect]
     Active Substance: AMPICILLIN SODIUM\SULBACTAM SODIUM
     Indication: PNEUMONIA
     Dosage: UNK ()
     Route: 065
     Dates: start: 201601
  19. DRONABINOL. [Suspect]
     Active Substance: DRONABINOL
     Indication: DELIRIUM
     Dosage: UNK UNK, QD (1)
     Route: 065
     Dates: start: 2016
  20. DRONABINOL. [Suspect]
     Active Substance: DRONABINOL
     Dosage: UNK UNK, QD (1)
     Route: 065
     Dates: start: 2016
  21. DEXTROMETHORPHAN HYDROBROMIDE. [Suspect]
     Active Substance: DEXTROMETHORPHAN HYDROBROMIDE
     Indication: AGITATION
     Dosage: 24 MG, QD
     Route: 065
     Dates: start: 2017
  22. QUETIAPINE FUMARATE. [Suspect]
     Active Substance: QUETIAPINE FUMARATE
     Dosage: 100 MG, QD
     Route: 048
     Dates: start: 2017
  23. QUETIAPINE FUMARATE. [Suspect]
     Active Substance: QUETIAPINE FUMARATE
     Dosage: 150 MG, QD
     Route: 048
     Dates: start: 2016
  24. LORAZEPAM. [Suspect]
     Active Substance: LORAZEPAM
     Indication: DEMENTIA WITH LEWY BODIES
     Dosage: ()
  25. DRONABINOL. [Suspect]
     Active Substance: DRONABINOL
     Dosage: 15 MG, QD
     Route: 065
     Dates: start: 2016
  26. DONEPEZIL. [Concomitant]
     Active Substance: DONEPEZIL
     Indication: DELIRIUM
     Dosage: ()
     Route: 065
  27. RIVASTIGMINE. [Concomitant]
     Active Substance: RIVASTIGMINE
     Indication: DELIRIUM
     Dosage: ()
  28. FLUPENTIXOL DIHYDROCHLORIDE [Suspect]
     Active Substance: FLUPENTIXOL DIHYDROCHLORIDE
     Indication: PNEUMONIA
     Dosage: DAILY DOSE UNKNOWN; UNK ()
     Route: 048
  29. DEXTROMETHORPHAN HYDROBROMIDE. [Suspect]
     Active Substance: DEXTROMETHORPHAN HYDROBROMIDE
     Indication: AGGRESSION
     Dosage: DOSE INCREASED, TWO DIVIDED DOSES; ()
     Route: 065
     Dates: start: 2017
  30. DONEPEZIL. [Concomitant]
     Active Substance: DONEPEZIL
     Indication: DEMENTIA WITH LEWY BODIES
     Dosage: ()
  31. RIVASTIGMINE. [Concomitant]
     Active Substance: RIVASTIGMINE
     Indication: DEMENTIA WITH LEWY BODIES
     Dosage: ()
     Route: 065
  32. SPIRIVA [Suspect]
     Active Substance: TIOTROPIUM BROMIDE MONOHYDRATE
     Indication: PNEUMONIA
     Dosage: UNK ()
     Route: 065
     Dates: start: 201601
  33. RIVASTIGMINE. [Concomitant]
     Active Substance: RIVASTIGMINE
     Indication: AGGRESSION
     Dosage: ()

REACTIONS (9)
  - Product use in unapproved indication [Fatal]
  - Hangover [Fatal]
  - Aggression [Fatal]
  - Sleep disorder [Fatal]
  - Condition aggravated [Fatal]
  - Completed suicide [Fatal]
  - Off label use [Fatal]
  - Fatigue [Fatal]
  - Paranoia [Fatal]

NARRATIVE: CASE EVENT DATE: 2017
